FAERS Safety Report 16466953 (Version 2)
Quarter: 2019Q3

REPORT INFORMATION
  Report Type: Report from Study
  Country: None (occurrence: US)
  Receive Date: 20190624
  Receipt Date: 20190729
  Transmission Date: 20191004
  Serious: Yes (Other)
  Sender: FDA-Public Use
  Company Number: US-ABBVIE-19K-163-2825743-00

PATIENT
  Age: 53 Year
  Sex: Female
  Weight: 81.72 kg

DRUGS (1)
  1. MAVYRET [Suspect]
     Active Substance: GLECAPREVIR\PIBRENTASVIR
     Indication: HEPATITIS C
     Route: 048
     Dates: start: 20190118, end: 20190315

REACTIONS (5)
  - Fall [Not Recovered/Not Resolved]
  - Contusion [Recovering/Resolving]
  - Exostosis [Unknown]
  - Pelvic fracture [Recovering/Resolving]
  - Arthritis [Unknown]

NARRATIVE: CASE EVENT DATE: 20190610
